FAERS Safety Report 6902808-7 (Version None)
Quarter: 2010Q3

REPORT INFORMATION
  Report Type: 
  Country: None (occurrence: None)
  Receive Date: 20100803
  Receipt Date: 20080626
  Transmission Date: 20110219
  Serious: Yes (Other)
  Sender: FDA-Public Use
  Company Number: US-PFIZER INC-2008054299

PATIENT
  Age: 33 Year
  Sex: Female
  Weight: 79.8 kg

DRUGS (10)
  1. LYRICA [Suspect]
     Indication: FIBROMYALGIA
     Route: 048
     Dates: start: 20070829
  2. ALL OTHER THERAPEUTIC PRODUCTS [Suspect]
  3. LITHIUM [Concomitant]
  4. METHOTREXATE [Concomitant]
  5. SEROQUEL [Concomitant]
  6. SYNTHROID [Concomitant]
  7. NEXIUM [Concomitant]
  8. METHADONE HCL [Concomitant]
  9. FOLIC ACID [Concomitant]
  10. LOMOTIL [Concomitant]

REACTIONS (1)
  - AMNESIA [None]
